FAERS Safety Report 8533267 (Version 3)
Quarter: 2012Q4

REPORT INFORMATION
  Report Type: 
  Country: US (occurrence: US)
  Receive Date: 20120427
  Receipt Date: 20120830
  Transmission Date: 20130627
  Serious: Yes (Hospitalization)
  Sender: FDA-Public Use
  Company Number: US-BAYER-2012-040199

PATIENT
  Age: 18 Year
  Sex: Female
  Weight: 63.49 kg

DRUGS (6)
  1. YAZ [Suspect]
     Indication: ACNE
     Dosage: UNK
     Dates: start: 200708, end: 200708
  2. YAZ [Suspect]
     Indication: PRODUCT USED FOR UNKNOWN INDICATION
  3. BIOTIN FORTE [Concomitant]
     Dosage: 3 mg, UNK
  4. AZITHROMYCIN [Concomitant]
     Dosage: 250 mg, UNK
  5. AMOXICILLIN [Concomitant]
     Indication: PHARYNGITIS STREPTOCOCCAL
     Dosage: 500 mg, UNK
     Dates: start: 20070901
  6. HYDROCODONE W/ACETAMINOPHEN [Concomitant]

REACTIONS (8)
  - Pulmonary embolism [None]
  - Deep vein thrombosis [None]
  - Injury [None]
  - Pain [None]
  - Emotional distress [None]
  - Depression [None]
  - Anxiety [None]
  - Mental disorder [None]
